FAERS Safety Report 11334279 (Version 2)
Quarter: 2015Q3

REPORT INFORMATION
  Report Type: Spontaneous
  Country: US (occurrence: US)
  Receive Date: 20150803
  Receipt Date: 20150921
  Transmission Date: 20151125
  Serious: No
  Sender: FDA-Public Use
  Company Number: US-009507513-1507USA008926

PATIENT
  Age: 82 Year
  Sex: Female

DRUGS (9)
  1. NASONEX [Suspect]
     Active Substance: MOMETASONE FUROATE
     Indication: ASTHMA
     Dosage: 2 PUFFS IN EACH NOSTRIL ONCE IN MORNING AND THEN AGAIN IN THE EVENING
     Route: 055
     Dates: start: 199507
  2. ELIQUIS [Concomitant]
     Active Substance: APIXABAN
  3. LEVOTHYROXINE SODIUM. [Concomitant]
     Active Substance: LEVOTHYROXINE SODIUM
     Route: 048
  4. PRINIVIL [Concomitant]
     Active Substance: LISINOPRIL
     Route: 048
  5. DULERA [Suspect]
     Active Substance: FORMOTEROL FUMARATE DIHYDRATE\MOMETASONE FUROATE
  6. AYR SALINE NASAL GEL [Concomitant]
  7. SINGULAIR [Concomitant]
     Active Substance: MONTELUKAST SODIUM
     Route: 048
  8. FLECAINIDE [Concomitant]
     Active Substance: FLECAINIDE
  9. LIPITOR [Concomitant]
     Active Substance: ATORVASTATIN CALCIUM

REACTIONS (4)
  - Choking sensation [Not Recovered/Not Resolved]
  - Productive cough [Not Recovered/Not Resolved]
  - Drug ineffective for unapproved indication [Not Recovered/Not Resolved]
  - Medication error [Unknown]

NARRATIVE: CASE EVENT DATE: 20150626
